FAERS Safety Report 16466917 (Version 1)
Quarter: 2019Q2

REPORT INFORMATION
  Report Type: Spontaneous
  Country: US (occurrence: US)
  Receive Date: 20190624
  Receipt Date: 20190624
  Transmission Date: 20190711
  Serious: No
  Sender: FDA-Public Use
  Company Number: US-ELI_LILLY_AND_COMPANY-US201906010875

PATIENT
  Age: 47 Year
  Sex: Male

DRUGS (3)
  1. MEKTOVI [Suspect]
     Active Substance: BINIMETINIB
     Indication: NEUROENDOCRINE TUMOUR
     Dosage: 45 MG, BID
     Route: 048
     Dates: start: 20190422
  2. ERBITUX [Suspect]
     Active Substance: CETUXIMAB
     Indication: PRODUCT USED FOR UNKNOWN INDICATION
     Dosage: UNK UNK, UNKNOWN
     Route: 065
  3. BRAFTOVI [Suspect]
     Active Substance: ENCORAFENIB
     Indication: NEUROENDOCRINE TUMOUR
     Dosage: 300 MG, DAILY
     Route: 048
     Dates: start: 20190422

REACTIONS (2)
  - Rash [Unknown]
  - Hypoaesthesia [Unknown]
